FAERS Safety Report 7784751-7 (Version None)
Quarter: 2011Q3

REPORT INFORMATION
  Report Type: 
  Country: None (occurrence: None)
  Receive Date: 20110928
  Receipt Date: 20110926
  Transmission Date: 20111222
  Serious: Yes (Other)
  Sender: FDA-Public Use
  Company Number: CHPA2011US13164

PATIENT
  Age: 45 Year
  Sex: Female

DRUGS (3)
  1. NICOTINE [Suspect]
     Indication: SMOKING CESSATION THERAPY
     Dosage: 7 MG, QD
     Route: 062
  2. NICOTINE [Suspect]
     Dosage: 21 MG, QD
     Route: 062
  3. NICOTINE [Suspect]
     Dosage: 14 MG, QD
     Route: 062

REACTIONS (1)
  - MULTIPLE MYELOMA [None]
